FAERS Safety Report 4726322-2 (Version None)
Quarter: 2005Q3

REPORT INFORMATION
  Report Type: 
  Country: None (occurrence: None)
  Receive Date: 20050727
  Receipt Date: 20050601
  Transmission Date: 20060218
  Serious: Yes (Hospitalization)
  Sender: FDA-Public Use
  Company Number: JP-ROCHE-407041

PATIENT
  Age: 12 Year
  Sex: Male

DRUGS (3)
  1. ROCEPHIN [Suspect]
     Indication: BRONCHITIS ACUTE
     Route: 041
     Dates: start: 20050517, end: 20050517
  2. FLOMOX [Concomitant]
     Route: 048
     Dates: start: 20050517, end: 20050517
  3. MUCODYNE [Concomitant]
     Route: 048
     Dates: start: 20050517, end: 20050517

REACTIONS (3)
  - ARRHYTHMIA [None]
  - PALPITATIONS [None]
  - VENTRICULAR EXTRASYSTOLES [None]
